FAERS Safety Report 25837311 (Version 1)
Quarter: 2025Q3

REPORT INFORMATION
  Report Type: Spontaneous
  Country: US (occurrence: US)
  Receive Date: 20250923
  Receipt Date: 20250923
  Transmission Date: 20251020
  Serious: No
  Sender: SANOFI AVENTIS
  Company Number: US-SA-2025SA281828

PATIENT
  Age: 54 Year
  Sex: Female

DRUGS (4)
  1. DUPIXENT [Suspect]
     Active Substance: DUPILUMAB
     Indication: Eosinophilic oesophagitis
     Dosage: 300 MG, QW
     Route: 058
     Dates: start: 202407
  2. DUPIXENT [Suspect]
     Active Substance: DUPILUMAB
     Indication: Idiopathic urticaria
     Dosage: 300 MG, QOW
     Route: 058
     Dates: start: 202508
  3. CETIRIZINE [Concomitant]
     Active Substance: CETIRIZINE HYDROCHLORIDE
     Dates: end: 202509
  4. MIRENA [Concomitant]
     Active Substance: LEVONORGESTREL
     Indication: Intrauterine contraception

REACTIONS (3)
  - Pharyngeal swelling [Unknown]
  - Malaise [Unknown]
  - Pruritus [Unknown]

NARRATIVE: CASE EVENT DATE: 20250901
